FAERS Safety Report 8230708-1 (Version None)
Quarter: 2012Q1

REPORT INFORMATION
  Report Type: 
  Country: None (occurrence: None)
  Receive Date: 20120323
  Receipt Date: 20120315
  Transmission Date: 20120608
  Serious: Yes (Other)
  Sender: FDA-Public Use
  Company Number: PHHY2012IT023033

PATIENT
  Sex: Male

DRUGS (1)
  1. EPIRUBICIN [Suspect]
     Route: 064

REACTIONS (3)
  - PYREXIA [None]
  - FOETAL EXPOSURE DURING PREGNANCY [None]
  - VENTRICULAR HYPOKINESIA [None]
